FAERS Safety Report 5102199-0 (Version None)
Quarter: 2006Q3

REPORT INFORMATION
  Report Type: 
  Country: None (occurrence: None)
  Receive Date: 20060912
  Receipt Date: 20060901
  Transmission Date: 20061208
  Serious: Yes (Other)
  Sender: FDA-Public Use
  Company Number: JP-JNJFOC-20051200630

PATIENT
  Age: 61 Year
  Sex: Male

DRUGS (4)
  1. DUROTEP [Suspect]
     Indication: CANCER PAIN
     Dosage: TWO 2.5 MG PATCHES
     Route: 062
  2. MOSAPRIDE CITRATE [Concomitant]
  3. BROTIZOLAM [Concomitant]
  4. MORPHINE [Concomitant]
     Route: 048

REACTIONS (2)
  - DELIRIUM [None]
  - PYREXIA [None]
